FAERS Safety Report 19946277 (Version 1)
Quarter: 2021Q4

REPORT INFORMATION
  Report Type: Report from Study
  Country: IN (occurrence: IN)
  Receive Date: 20211012
  Receipt Date: 20211012
  Transmission Date: 20220303
  Serious: Yes (Death)
  Sender: FDA-Public Use
  Company Number: IN-NOVARTISPH-NVSC2021IN232530

PATIENT
  Age: 63 Year
  Sex: Male

DRUGS (1)
  1. CERTICAN [Suspect]
     Active Substance: EVEROLIMUS
     Indication: Liver transplant
     Dosage: 0.50 MG, BID
     Route: 065
     Dates: start: 20210801, end: 20211007

REACTIONS (1)
  - Hepatic infection [Fatal]

NARRATIVE: CASE EVENT DATE: 20211009
